FAERS Safety Report 8283408-6 (Version None)
Quarter: 2012Q2

REPORT INFORMATION
  Report Type: 
  Country: None (occurrence: None)
  Receive Date: 20120413
  Receipt Date: 20120404
  Transmission Date: 20120825
  Serious: Yes (Other)
  Sender: FDA-Public Use
  Company Number: US-ASTRAZENECA-2005UW14611

PATIENT
  Age: 70 Year
  Sex: Female
  Weight: 90.7 kg

DRUGS (10)
  1. NEXIUM [Suspect]
     Indication: HELICOBACTER GASTRITIS
     Route: 048
     Dates: start: 20010101
  2. ZESTRIL [Concomitant]
  3. ASPIRIN [Concomitant]
  4. PRILOSEC [Suspect]
     Indication: BARRETT'S OESOPHAGUS
     Route: 048
     Dates: start: 20000101
  5. SYNTHROID [Concomitant]
  6. METAMUCIL-2 [Concomitant]
  7. NEXIUM [Suspect]
     Indication: GASTROOESOPHAGEAL REFLUX DISEASE
     Route: 048
     Dates: start: 20010101
  8. BENICAR [Concomitant]
  9. NEXIUM [Suspect]
     Dosage: 40 MG AS SHE NEEDS, EVERY OTHER DAY OR 2-3 TIMES PER WEEK
     Route: 048
     Dates: end: 20120101
  10. NEXIUM [Suspect]
     Dosage: 40 MG AS SHE NEEDS, EVERY OTHER DAY OR 2-3 TIMES PER WEEK
     Route: 048
     Dates: end: 20120101

REACTIONS (6)
  - CONSTIPATION [None]
  - DRUG INEFFECTIVE FOR UNAPPROVED INDICATION [None]
  - OFF LABEL USE [None]
  - FALL [None]
  - DIARRHOEA [None]
  - UPPER LIMB FRACTURE [None]
